FAERS Safety Report 6223373-6 (Version None)
Quarter: 2009Q2

REPORT INFORMATION
  Report Type: 
  Country: None (occurrence: None)
  Receive Date: 20090611
  Receipt Date: 20090529
  Transmission Date: 20091009
  Serious: Yes (Hospitalization)
  Sender: FDA-Public Use
  Company Number: ES-ELI_LILLY_AND_COMPANY-ES200906000299

PATIENT
  Age: 82 Year
  Sex: Female

DRUGS (5)
  1. FORTEO [Suspect]
     Indication: OSTEOPOROSIS
     Dosage: 20 UG, UNKNOWN
     Route: 058
     Dates: start: 20090201, end: 20090501
  2. FORTEO [Suspect]
     Dosage: 20 UG, UNKNOWN
     Route: 058
     Dates: start: 20090501
  3. ADIRO [Concomitant]
     Dosage: UNK, UNKNOWN
     Route: 065
  4. INSULIN [Concomitant]
     Indication: DIABETES MELLITUS
     Dosage: UNK, UNKNOWN
     Route: 065
  5. IDAPTAN [Concomitant]
     Dosage: UNK, UNKNOWN
     Route: 065

REACTIONS (3)
  - ABDOMINAL STRANGULATED HERNIA [None]
  - BLOOD PRESSURE ABNORMAL [None]
  - POLLAKIURIA [None]
